FAERS Safety Report 16046428 (Version 1)
Quarter: 2019Q1

REPORT INFORMATION
  Report Type: Spontaneous
  Country: US (occurrence: US)
  Receive Date: 20190307
  Receipt Date: 20190307
  Transmission Date: 20190418
  Serious: Yes (Other)
  Sender: FDA-Public Use
  Company Number: US-TEVA-2019-US-1020153

PATIENT
  Age: 66 Year
  Sex: Female
  Weight: 70.31 kg

DRUGS (8)
  1. GABAPENTIN ACTAVIS [Suspect]
     Active Substance: GABAPENTIN
     Indication: SCIATICA
     Dosage: 1 DOSAGE FORMS DAILY; 1DF=1 CAPSULE
     Route: 048
     Dates: start: 201707, end: 201708
  2. OXYCODONE [Concomitant]
     Active Substance: OXYCODONE
     Indication: SCIATICA
  3. ENDOCET [Concomitant]
     Active Substance: ACETAMINOPHEN\OXYCODONE HYDROCHLORIDE
     Indication: SCIATICA
  4. TRAMADOL. [Concomitant]
     Active Substance: TRAMADOL
     Indication: SCIATICA
  5. CYCLOBENZAPRINE. [Concomitant]
     Active Substance: CYCLOBENZAPRINE
     Indication: SCIATICA
  6. NAPROXEN. [Concomitant]
     Active Substance: NAPROXEN
     Indication: SCIATICA
  7. GABAPENTIN ACTAVIS [Suspect]
     Active Substance: GABAPENTIN
     Dosage: 12 DOSAGE FORMS DAILY; 1DF=1 CAPSULE
     Route: 048
     Dates: start: 201707, end: 201708
  8. BACLOFEN. [Concomitant]
     Active Substance: BACLOFEN
     Indication: SCIATICA

REACTIONS (6)
  - Spinal operation [Unknown]
  - Incorrect dose administered [Unknown]
  - Drug tolerance decreased [Unknown]
  - Cyst [Unknown]
  - Product use in unapproved indication [Unknown]
  - Drug ineffective [Unknown]

NARRATIVE: CASE EVENT DATE: 201708
